FAERS Safety Report 14309070 (Version 2)
Quarter: 2018Q1

REPORT INFORMATION
  Report Type: Spontaneous
  Country: PL (occurrence: PL)
  Receive Date: 20171220
  Receipt Date: 20180309
  Transmission Date: 20180509
  Serious: Yes (Other)
  Sender: FDA-Public Use
  Company Number: PL-AUROBINDO-AUR-APL-2017-46250

PATIENT
  Age: 29 Year
  Sex: Female

DRUGS (3)
  1. CLOTRIMAZOL [Suspect]
     Active Substance: CLOTRIMAZOLE
     Indication: ENDOCARDITIS
     Dosage: UNK
     Route: 067
  2. METOPROLOL. [Suspect]
     Active Substance: METOPROLOL
     Indication: TACHYCARDIA
     Dosage: 75 MG, DAILY
     Route: 065
  3. AMPICILLIN [Suspect]
     Active Substance: AMPICILLIN
     Indication: ENDOCARDITIS
     Dosage: 10 G, DAILY
     Route: 065

REACTIONS (2)
  - Exposure during pregnancy [Unknown]
  - Leukopenia [Unknown]
